FAERS Safety Report 8668237 (Version 2)
Quarter: 2012Q4

REPORT INFORMATION
  Report Type: Report from Study
  Country: DE (occurrence: DE)
  Receive Date: 20120717
  Receipt Date: 20120917
  Transmission Date: 20130627
  Serious: Yes (Death, Hospitalization)
  Sender: FDA-Public Use
  Company Number: DE-ROCHE-1052477

PATIENT
  Age: 55 Year
  Sex: Male
  Weight: 82 kg

DRUGS (5)
  1. PEGASYS [Suspect]
     Indication: HEPATITIS C
     Dosage: Date of last dose prior to SAE: 14/Mar/2012
     Route: 058
     Dates: start: 20120114, end: 20120315
  2. COPEGUS [Suspect]
     Indication: HEPATITIS C
     Route: 048
     Dates: start: 20120114, end: 20120315
  3. TELAPREVIR [Suspect]
     Indication: HEPATITIS C
     Route: 048
     Dates: start: 20120114, end: 20120315
  4. SPIRONOLACTON [Concomitant]
     Dosage: Date of last dose prior to SAE: 20/Mar/2012
     Route: 065
  5. LACTULOSE [Concomitant]

REACTIONS (3)
  - Acute hepatic failure [Fatal]
  - Jaundice [Unknown]
  - Asthenia [Unknown]
